FAERS Safety Report 7889859-3 (Version None)
Quarter: 2011Q4

REPORT INFORMATION
  Report Type: 
  Country: None (occurrence: None)
  Receive Date: 20111103
  Receipt Date: 20111026
  Transmission Date: 20120403
  Serious: Yes (Other)
  Sender: FDA-Public Use
  Company Number: US-GLAXOSMITHKLINE-A0951565A

PATIENT
  Age: 43 Year
  Sex: Male

DRUGS (3)
  1. REVATIO [Concomitant]
     Dosage: 20MG THREE TIMES PER DAY
  2. COUMADIN [Concomitant]
     Dosage: 2MG AT NIGHT
  3. FLOLAN [Suspect]
     Indication: PULMONARY ARTERIAL HYPERTENSION
     Dosage: 34NGKM UNKNOWN
     Route: 065
     Dates: start: 20100521

REACTIONS (1)
  - RECTAL HAEMORRHAGE [None]
